FAERS Safety Report 19381953 (Version 1)
Quarter: 2021Q2

REPORT INFORMATION
  Report Type: Spontaneous
  Country: FR (occurrence: FR)
  Receive Date: 20210607
  Receipt Date: 20210607
  Transmission Date: 20210717
  Serious: Yes (Life-Threatening, Hospitalization)
  Sender: FDA-Public Use
  Company Number: FR-ARBOR PHARMACEUTICALS, LLC-FR-2021ARB000623

PATIENT
  Age: 56 Year
  Sex: Male

DRUGS (6)
  1. TRIPTODUR [Suspect]
     Active Substance: TRIPTORELIN
  2. ANDROCUR [Suspect]
     Active Substance: CYPROTERONE ACETATE
     Indication: PARAPHILIA
     Dosage: 50 MG IN THE MORNING AND 100 MG IN THE EVENING
     Route: 065
     Dates: end: 20210510
  3. TRIPTODUR [Suspect]
     Active Substance: TRIPTORELIN
     Indication: PARAPHILIA
     Dosage: 11.25 MG (1 DOSAGE FORMS,12 WK)
     Route: 065
     Dates: start: 20210507
  4. LAROXYL [Suspect]
     Active Substance: AMITRIPTYLINE HYDROCHLORIDE
     Indication: DEPRESSION
     Dosage: 100 MG, 1 D
     Route: 048
  5. TRIPTODUR [Suspect]
     Active Substance: TRIPTORELIN
  6. TERCIAN                            /00759301/ [Suspect]
     Active Substance: CYAMEMAZINE
     Indication: PSYCHOTIC DISORDER
     Dosage: 375 GTT, 1 D
     Route: 048

REACTIONS (1)
  - Pulmonary embolism [Recovered/Resolved]

NARRATIVE: CASE EVENT DATE: 20210509
